FAERS Safety Report 16640557 (Version 1)
Quarter: 2019Q3

REPORT INFORMATION
  Report Type: Spontaneous
  Country: GB (occurrence: GB)
  Receive Date: 20190729
  Receipt Date: 20190729
  Transmission Date: 20191004
  Serious: Yes (Other)
  Sender: FDA-Public Use
  Company Number: GB-ACCORD-149414

PATIENT
  Age: 79 Year
  Sex: Male
  Weight: 75 kg

DRUGS (39)
  1. DOXAZOSIN [Concomitant]
     Active Substance: DOXAZOSIN MESYLATE
     Dosage: IN THE MORNING
     Dates: start: 20010606
  2. DIHYDROCODEINE [Concomitant]
     Active Substance: DIHYDROCODEINE
     Dates: start: 20020213, end: 20190625
  3. FLUCLOXACILLIN [Concomitant]
     Active Substance: FLUCLOXACILLIN
     Dates: start: 20190502, end: 20190531
  4. BENDROFLUMETHIAZIDE [Concomitant]
     Active Substance: BENDROFLUMETHIAZIDE
     Dosage: IN THE MORNING
     Dates: start: 20031114, end: 20190625
  5. HUMULIN L [Concomitant]
     Active Substance: INSULIN HUMAN
     Dosage: FOR SUBCUTANEOUS INJECTION, ACCORDING TO REQUIREMENTS
     Route: 058
     Dates: start: 20190625, end: 20190626
  6. LOFEPRAMINE [Concomitant]
     Active Substance: LOFEPRAMINE
     Dates: start: 20000704, end: 20190625
  7. NISOLDIPINE. [Concomitant]
     Active Substance: NISOLDIPINE
     Dosage: IN THE MORNING
     Dates: start: 19970807, end: 20190625
  8. AMLODIPINE [Concomitant]
     Active Substance: AMLODIPINE BESYLATE
     Dates: start: 20050524, end: 20190625
  9. TRIMETHOPRIM. [Concomitant]
     Active Substance: TRIMETHOPRIM
     Dates: start: 20190531, end: 20190601
  10. DICLOFENAC [Concomitant]
     Active Substance: DICLOFENAC
     Dosage: APPLY THREE OR FOUR TIMES A DAY
     Dates: start: 20190501, end: 20190613
  11. RIVASTIGMINE/RIVASTIGMINE TARTRATE [Concomitant]
     Dates: start: 20171204
  12. BEZALIP [Concomitant]
     Active Substance: BEZAFIBRATE
     Dosage: AT NIGHT
     Dates: start: 19940221, end: 20190625
  13. HUMULIN M3 [Concomitant]
     Active Substance: INSULIN HUMAN
     Dosage: AS DIRECTED BY THE DIABETES CENTRE
     Dates: start: 20101026, end: 20190624
  14. NITROFURANTOIN/NITROFURANTOIN SODIUM [Concomitant]
     Dates: start: 20190625
  15. METFORMIN [Concomitant]
     Active Substance: METFORMIN HYDROCHLORIDE
     Dates: start: 20010910, end: 20190625
  16. CO-PROXAMOL [Concomitant]
     Active Substance: ACETAMINOPHEN\PROPOXYPHENE HYDROCHLORIDE
     Dosage: AS DIRECTED
     Dates: start: 20020816, end: 20190625
  17. IBUPROFEN. [Concomitant]
     Active Substance: IBUPROFEN
     Dosage: APPLY UP TO THREE TIMES A DAY
     Dates: start: 20190405, end: 20190518
  18. CANDESARTAN. [Concomitant]
     Active Substance: CANDESARTAN
     Dates: start: 20060928, end: 20190625
  19. CODEINE [Concomitant]
     Active Substance: CODEINE
     Dosage: ONE OR TWO TO BE TAKEN AS REQUIRED
     Dates: start: 20000719, end: 20190625
  20. LACIDIPINE [Concomitant]
     Active Substance: LACIDIPINE
     Dates: start: 20050803, end: 20190625
  21. FULTIUM-D3 [Concomitant]
     Active Substance: CHOLECALCIFEROL
     Dates: start: 20160208
  22. CHLORAMPHENICOL [Concomitant]
     Active Substance: CHLORAMPHENICOL
     Dosage: IN THE AFFECTED EYE(S)
     Dates: start: 20190625
  23. DOSULEPIN HYDROCHLORIDE [Concomitant]
     Active Substance: DOTHIEPIN HYDROCHLORIDE
     Dosage: AT NIGHT
     Dates: start: 19900525, end: 20190625
  24. ATENOLOL/ATENOLOL HYDROCHLORIDE [Concomitant]
     Dosage: IN THE MORNING
     Dates: start: 20000517
  25. PARACETAMOL [Concomitant]
     Active Substance: ACETAMINOPHEN
     Dosage: AS DIRECTED
     Dates: start: 20000719, end: 20190625
  26. FOLIC ACID. [Concomitant]
     Active Substance: FOLIC ACID
     Dates: start: 20160814
  27. IRBESARTAN. [Concomitant]
     Active Substance: IRBESARTAN
     Dates: start: 20060728, end: 20190625
  28. RISPERIDONE. [Concomitant]
     Active Substance: RISPERIDONE
     Dosage: ONE TABLET EACH DAY AND ONE ADDITONAL TABLET WH...
     Dates: start: 20180717
  29. GABAPENTIN. [Concomitant]
     Active Substance: GABAPENTIN
     Dosage: AS DIRECTED
     Dates: start: 20071231, end: 20190625
  30. ATORVASTATIN [Concomitant]
     Active Substance: ATORVASTATIN
     Dosage: IN THE MORNING
     Dates: start: 20000614
  31. TRAMADOL. [Concomitant]
     Active Substance: TRAMADOL
     Dosage: TWO TO BE TAKEN FOUR TIMES A DAY AS REQUIRED
     Dates: start: 20020109, end: 20190625
  32. RAMIPRIL. [Suspect]
     Active Substance: RAMIPRIL
     Indication: PRODUCT USED FOR UNKNOWN INDICATION
     Dates: start: 20000316
  33. DEPO-MEDRONE [Concomitant]
     Active Substance: METHYLPREDNISOLONE
     Dosage: STAT
     Dates: start: 20070424, end: 20190625
  34. DOCUSATE [Concomitant]
     Active Substance: DOCUSATE
     Dosage: UP TO TWO TWICE DAILY
     Dates: start: 20171222, end: 20190625
  35. AMITRIPTYLINE [Concomitant]
     Active Substance: AMITRIPTYLINE
     Dosage: AT NIGHT
     Dates: start: 20040318, end: 20190625
  36. ACIDEX [Concomitant]
     Active Substance: CALCIUM CARBONATE\SODIUM ALGINATE\SODIUM BICARBONATE
     Dosage: 10 ML AFTER FOOD AND AT NIGHT AS REQUIRED
     Dates: start: 20050531, end: 20190625
  37. RANITIDINE. [Concomitant]
     Active Substance: RANITIDINE
     Dates: start: 19900326
  38. CREON [Concomitant]
     Active Substance: PANCRELIPASE AMYLASE\PANCRELIPASE LIPASE\PANCRELIPASE PROTEASE
     Dosage: 2 WITH EACH MEAL
     Dates: start: 20160208
  39. MORPHINE [Concomitant]
     Active Substance: MORPHINE
     Indication: PAIN
     Dosage: 5MLS PRN FOR PAIN MAX 2 HOURLY
     Dates: start: 20160331, end: 20190625

REACTIONS (1)
  - Drug intolerance [Unknown]

NARRATIVE: CASE EVENT DATE: 20190627
